FAERS Safety Report 17261477 (Version 2)
Quarter: 2020Q1

REPORT INFORMATION
  Report Type: Spontaneous
  Country: DE (occurrence: DE)
  Receive Date: 20200113
  Receipt Date: 20200302
  Transmission Date: 20200409
  Serious: Yes (Hospitalization, Disabling, Other)
  Sender: FDA-Public Use
  Company Number: DE-SA-2020SA005717

PATIENT
  Age: 67 Year
  Sex: Female
  Weight: 59 kg

DRUGS (5)
  1. AUGMENTAN [AMOXICILLIN SODIUM;CLAVULANATE POTASSIUM] [Concomitant]
     Active Substance: AMOXICILLIN\CLAVULANATE POTASSIUM
     Dosage: 1-0-1
  2. DUPIXENT [Suspect]
     Active Substance: DUPILUMAB
     Indication: CHRONIC RHINOSINUSITIS WITH NASAL POLYPS
     Dosage: 300 MG
     Route: 058
     Dates: start: 20191111, end: 20191209
  3. BENEPALI [Interacting]
     Active Substance: ETANERCEPT
     Indication: ANKYLOSING SPONDYLITIS
     Dosage: UNK UNK, QW
     Route: 058
     Dates: start: 2006
  4. NASONEX [Concomitant]
     Active Substance: MOMETASONE FUROATE
     Indication: CHRONIC RHINOSINUSITIS WITH NASAL POLYPS
     Dosage: 2 DF, BID, 0-1 BOTH SIDES
     Route: 045
     Dates: start: 201910
  5. FOSTER [Concomitant]
     Active Substance: BECLOMETHASONE\FORMOTEROL
     Indication: ASTHMA
     Dosage: -0-1 AND IF NECESSARY
     Dates: start: 201910

REACTIONS (21)
  - Respiratory symptom [Unknown]
  - Dermatitis exfoliative generalised [Recovering/Resolving]
  - Bronchitis chronic [Unknown]
  - Dyspnoea [Unknown]
  - Condition aggravated [Unknown]
  - Pyrexia [Not Recovered/Not Resolved]
  - Cough [Unknown]
  - Respiratory distress [Unknown]
  - Bronchitis [Unknown]
  - Organising pneumonia [Recovering/Resolving]
  - Fatigue [Unknown]
  - Laboratory test abnormal [Not Recovered/Not Resolved]
  - Rash [Not Recovered/Not Resolved]
  - Painful respiration [Unknown]
  - Feeling cold [Unknown]
  - Lung infiltration [Not Recovered/Not Resolved]
  - Hypertension [Unknown]
  - Productive cough [Unknown]
  - Haemoptysis [Unknown]
  - Thrombocytosis [Unknown]
  - Drug interaction [Unknown]

NARRATIVE: CASE EVENT DATE: 20191126
